FAERS Safety Report 10766785 (Version 1)
Quarter: 2015Q1

REPORT INFORMATION
  Report Type: Spontaneous
  Country: CN (occurrence: CN)
  Receive Date: 20150205
  Receipt Date: 20150205
  Transmission Date: 20150721
  Serious: Yes (Hospitalization)
  Sender: FDA-Public Use
  Company Number: CN-ASTRAZENECA-2015SE09819

PATIENT
  Age: 65 Year
  Sex: Female

DRUGS (2)
  1. BETALOC [Suspect]
     Active Substance: METOPROLOL TARTRATE
     Route: 048
     Dates: start: 2013
  2. PLENDIL [Suspect]
     Active Substance: FELODIPINE
     Indication: HYPERTENSION
     Route: 048
     Dates: start: 2012

REACTIONS (3)
  - Extrasystoles [Unknown]
  - Aortic valve disease [Unknown]
  - Cardiac disorder [Unknown]
